FAERS Safety Report 8590700 (Version 4)
Quarter: 2014Q2

REPORT INFORMATION
  Report Type: Spontaneous
  Country: US (occurrence: US)
  Receive Date: 20120601
  Receipt Date: 20140428
  Transmission Date: 20141212
  Serious: Yes (Hospitalization)
  Sender: FDA-Public Use
  Company Number: US-ALEXION-A201200812

PATIENT
  Age: 42 Year
  Sex: Female
  Weight: 81.63 kg

DRUGS (6)
  1. SOLIRIS 300MG [Suspect]
     Indication: HAEMOLYTIC URAEMIC SYNDROME
     Dosage: UNK, Q3-4 WEEKS
     Route: 042
     Dates: start: 20120410
  2. SOLIRIS 300MG [Suspect]
     Dosage: UNK, Q2 WEEKS
     Route: 042
  3. ENTOCORT [Concomitant]
  4. VERAPAMIL [Concomitant]
  5. NIMODIPINE [Concomitant]
  6. BENADRYL [Concomitant]

REACTIONS (7)
  - Hypotension [Unknown]
  - Infusion related reaction [Unknown]
  - Hypersensitivity [Unknown]
  - Inappropriate schedule of drug administration [Unknown]
  - Influenza like illness [Unknown]
  - Arthralgia [Unknown]
  - Eosinophilia [Unknown]
